FAERS Safety Report 20815117 (Version 1)
Quarter: 2022Q2

REPORT INFORMATION
  Report Type: Spontaneous
  Country: US (occurrence: US)
  Receive Date: 20220511
  Receipt Date: 20220511
  Transmission Date: 20220721
  Serious: Yes (Other)
  Sender: FDA-Public Use
  Company Number: US-SUNOVION-2022SUN001487

PATIENT
  Sex: Male

DRUGS (2)
  1. LATUDA [Suspect]
     Active Substance: LURASIDONE HYDROCHLORIDE
     Indication: Bipolar disorder
     Dosage: 20 MG
     Route: 048
  2. LATUDA [Suspect]
     Active Substance: LURASIDONE HYDROCHLORIDE
     Indication: Depression
     Dosage: 40 MG
     Route: 048

REACTIONS (8)
  - Suicidal ideation [Unknown]
  - Negative thoughts [Unknown]
  - Crying [Unknown]
  - Emotional distress [Unknown]
  - Dysphemia [Unknown]
  - Mood swings [Unknown]
  - Pain [Unknown]
  - Anxiety [Unknown]
